FAERS Safety Report 8365902-2 (Version None)
Quarter: 2012Q2

REPORT INFORMATION
  Report Type: 
  Country: None (occurrence: None)
  Receive Date: 20120515
  Receipt Date: 20120515
  Transmission Date: 20120825
  Serious: Yes (Life-Threatening, Hospitalization, Other)
  Sender: FDA-Public Use
  Company Number: None

PATIENT
  Age: 38 Year
  Sex: Female
  Weight: 59.4212 kg

DRUGS (1)
  1. LEVOFLOXACIN [Suspect]
     Indication: BRONCHITIS
     Dosage: 1TABLET EVERYDAY
     Dates: start: 20120512, end: 20120512

REACTIONS (12)
  - HYPOAESTHESIA [None]
  - SWOLLEN TONGUE [None]
  - DYSPNOEA [None]
  - LIP SWELLING [None]
  - OEDEMA PERIPHERAL [None]
  - PARAESTHESIA ORAL [None]
  - SWELLING FACE [None]
  - RASH [None]
  - SPEECH DISORDER [None]
  - ABASIA [None]
  - THROAT TIGHTNESS [None]
  - PARAESTHESIA [None]
